FAERS Safety Report 7148843-8 (Version None)
Quarter: 2010Q4

REPORT INFORMATION
  Report Type: 
  Country: None (occurrence: None)
  Receive Date: 20101209
  Receipt Date: 20101206
  Transmission Date: 20110411
  Serious: Yes (Death)
  Sender: FDA-Public Use
  Company Number: PHHY2010US83301

PATIENT
  Sex: Male

DRUGS (1)
  1. GLEEVEC [Suspect]
     Indication: CHRONIC MYELOID LEUKAEMIA
     Dosage: TWO TABLETS DAILY, ALTERNATING WITH ONE TABLET DAILY
     Route: 048
     Dates: start: 20101110

REACTIONS (1)
  - DEATH [None]
